FAERS Safety Report 5119527-2 (Version None)
Quarter: 2006Q4

REPORT INFORMATION
  Report Type: 
  Country: None (occurrence: None)
  Receive Date: 20061003
  Receipt Date: 20060925
  Transmission Date: 20070319
  Serious: Yes (Other)
  Sender: FDA-Public Use
  Company Number: JP-BRISTOL-MYERS SQUIBB COMPANY-13520044

PATIENT
  Age: 35 Year
  Sex: Male

DRUGS (4)
  1. CYCLOPHOSPHAMIDE [Suspect]
     Indication: CORD BLOOD TRANSPLANT THERAPY
  2. METHOTREXATE [Suspect]
     Indication: CORD BLOOD TRANSPLANT THERAPY
  3. CYCLOSPORINE [Suspect]
     Indication: PROPHYLAXIS AGAINST TRANSPLANT REJECTION
  4. PREDNISOLONE [Concomitant]
     Indication: GRAFT VERSUS HOST DISEASE

REACTIONS (1)
  - ENCEPHALITIS POST VARICELLA [None]
